FAERS Safety Report 5588916-4 (Version None)
Quarter: 2007Q4

REPORT INFORMATION
  Report Type: 
  Country: None (occurrence: None)
  Receive Date: 20071212
  Receipt Date: 20070828
  Transmission Date: 20080405
  Serious: No
  Sender: FDA-Public Use
  Company Number: 2007RL000386

PATIENT
  Age: 63 Year
  Sex: Female
  Weight: 83.4619 kg

DRUGS (6)
  1. LOVAZA [Suspect]
     Indication: BLOOD TRIGLYCERIDES INCREASED
     Dosage: 1 GM;QD;PO ; 2 GM;QD;PO ; 1 GM;QD;PO ; 1 GM;QD;PO
     Route: 047
     Dates: start: 20070829, end: 20070101
  2. LOVAZA [Suspect]
     Indication: BLOOD TRIGLYCERIDES INCREASED
     Dosage: 1 GM;QD;PO ; 2 GM;QD;PO ; 1 GM;QD;PO ; 1 GM;QD;PO
     Route: 047
     Dates: start: 20070826, end: 20070826
  3. LOVAZA [Suspect]
     Indication: BLOOD TRIGLYCERIDES INCREASED
     Dosage: 1 GM;QD;PO ; 2 GM;QD;PO ; 1 GM;QD;PO ; 1 GM;QD;PO
     Route: 047
     Dates: start: 20070827, end: 20070827
  4. LOVAZA [Suspect]
     Indication: BLOOD TRIGLYCERIDES INCREASED
     Dosage: 1 GM;QD;PO ; 2 GM;QD;PO ; 1 GM;QD;PO ; 1 GM;QD;PO
     Route: 047
     Dates: start: 20070101
  5. INDERAL /00030001/ [Concomitant]
  6. ATIVAN [Concomitant]

REACTIONS (8)
  - DECREASED APPETITE [None]
  - EAR PAIN [None]
  - EYE PAIN [None]
  - HEAD DISCOMFORT [None]
  - HEADACHE [None]
  - MALAISE [None]
  - MUSCLE TWITCHING [None]
  - RHINALGIA [None]
